FAERS Safety Report 5467609-8 (Version None)
Quarter: 2007Q3

REPORT INFORMATION
  Report Type: 
  Country: None (occurrence: None)
  Receive Date: 20070921
  Receipt Date: 20070910
  Transmission Date: 20080115
  Serious: Yes (Hospitalization, Other)
  Sender: FDA-Public Use
  Company Number: 07H-163-0313188-00

PATIENT
  Age: 54 Year
  Sex: Male

DRUGS (4)
  1. LORAZEPAM [Suspect]
     Indication: ALCOHOL WITHDRAWAL SYNDROME
     Dosage: APPROXIMATELY 10-20 MG/HR, NOT REPORTED, INTRAVENOUS DRIP
     Route: 041
  2. INTRAVENOUS FLUIDS (PARENTERAL) [Concomitant]
  3. THIAMINE (THIAMINE) [Concomitant]
  4. MULTIVITAMIN [Concomitant]

REACTIONS (6)
  - ANION GAP INCREASED [None]
  - DRUG TOXICITY [None]
  - HAEMODIALYSIS [None]
  - HYPEROSMOLAR STATE [None]
  - METABOLIC ACIDOSIS [None]
  - RENAL INJURY [None]
